FAERS Safety Report 6125110-2 (Version None)
Quarter: 2009Q1

REPORT INFORMATION
  Report Type: 
  Country: None (occurrence: None)
  Receive Date: 20090317
  Receipt Date: 20090306
  Transmission Date: 20090719
  Serious: Yes (Hospitalization)
  Sender: FDA-Public Use
  Company Number: PHHY2009US08575

PATIENT
  Age: 76 Year
  Sex: Female

DRUGS (3)
  1. HYDROCHLOROTHIAZIDE [Suspect]
     Indication: HYPERTENSION
  2. TRIAMTERENE (TRIAMTERENE) [Suspect]
     Indication: HYPERTENSION
  3. FUROSEMIDE [Suspect]
     Indication: HYPERTENSION

REACTIONS (7)
  - AGITATION [None]
  - CONFUSIONAL STATE [None]
  - DISORIENTATION [None]
  - EJECTION FRACTION DECREASED [None]
  - ELECTROCARDIOGRAM ST SEGMENT ELEVATION [None]
  - HYPONATRAEMIA [None]
  - STRESS CARDIOMYOPATHY [None]
